FAERS Safety Report 16726805 (Version 2)
Quarter: 2019Q4

REPORT INFORMATION
  Report Type: Report from Study
  Country: US (occurrence: US)
  Receive Date: 20190821
  Receipt Date: 20191104
  Transmission Date: 20200122
  Serious: Yes (Hospitalization, Other)
  Sender: FDA-Public Use
  Company Number: US-GILEAD-2019-0424559

PATIENT
  Age: 11 Year
  Sex: Male

DRUGS (3)
  1. AZTREONAM LYSINE [Suspect]
     Active Substance: AZTREONAM LYSINE
     Indication: CYSTIC FIBROSIS
     Dosage: 75 MG, TID 28 DAYS ON/OFF
     Dates: start: 20170425
  2. INSULIN [Suspect]
     Active Substance: INSULIN NOS
     Dosage: TOO MUCH
     Route: 065
     Dates: start: 201908
  3. INSULIN [Suspect]
     Active Substance: INSULIN NOS
     Indication: DIABETES MELLITUS
     Route: 065

REACTIONS (6)
  - Blood glucose decreased [Unknown]
  - Underweight [Recovering/Resolving]
  - Product dose omission [Unknown]
  - Lung disorder [Recovering/Resolving]
  - Decreased appetite [Recovering/Resolving]
  - Cystic fibrosis respiratory infection suppression [Recovering/Resolving]

NARRATIVE: CASE EVENT DATE: 201908
